FAERS Safety Report 9452265 (Version 1)
Quarter: 2013Q3

REPORT INFORMATION
  Report Type: Report from Study
  Country: DE (occurrence: DE)
  Receive Date: 20130812
  Receipt Date: 20130812
  Transmission Date: 20140515
  Serious: Yes (Hospitalization)
  Sender: FDA-Public Use
  Company Number: DE-BRISTOL-MYERS SQUIBB COMPANY-19165265

PATIENT
  Age: 70 Year
  Sex: Female

DRUGS (7)
  1. CARBOPLATIN [Suspect]
     Indication: OVARIAN CANCER
     Dosage: LAST ADMINISTRATION:10/JUL/2013.?ONGOING.
     Route: 042
     Dates: start: 20130619
  2. PACLITAXEL [Suspect]
     Indication: OVARIAN CANCER
     Dosage: LAST ADMINISTRATION:10/JUL/2013.?ONGOING.
     Route: 042
     Dates: start: 20130619
  3. BEVACIZUMAB [Suspect]
     Indication: OVARIAN CANCER
     Dosage: LAST ADMINISTRATION:10/JUL/2013.?ONGOING.
     Route: 042
     Dates: start: 20130619
  4. DEXAMETHASONE [Concomitant]
     Dosage: LAST ADMINISTRATION:L0/JUL/2013?DAY1/3 WEEKLY.
     Route: 042
  5. RANTAC [Concomitant]
     Dosage: LAST ADMINISTRATION:L0/JUL/2013.?DAY L/3 WEEKLY.
     Route: 042
     Dates: start: 20130619
  6. TAVEGIL [Concomitant]
     Dosage: LAST ADMINISTRATION:L0/JUL/2013.?DAY 1/ 3 WEEKLY.
     Route: 042
     Dates: start: 20130619
  7. GRANISETRON [Concomitant]
     Dosage: LAST ADMINISTRATION:10/JUL/2013.?DAY 1/ 3 WEEKLY.
     Route: 042
     Dates: start: 20130619

REACTIONS (1)
  - Subileus [Recovered/Resolved]
